FAERS Safety Report 25752443 (Version 1)
Quarter: 2025Q3

REPORT INFORMATION
  Report Type: Spontaneous
  Country: US (occurrence: US)
  Receive Date: 20250902
  Receipt Date: 20250902
  Transmission Date: 20251020
  Serious: No
  Sender: SANOFI AVENTIS
  Company Number: US-SA-2025SA260107

PATIENT
  Sex: Female

DRUGS (5)
  1. TZIELD [Suspect]
     Active Substance: TEPLIZUMAB-MZWV
     Indication: Diabetes prophylaxis
     Dosage: 65 UG/M2, QD
     Route: 042
     Dates: start: 20250623, end: 20250623
  2. TZIELD [Suspect]
     Active Substance: TEPLIZUMAB-MZWV
     Dosage: 125 UG/M2, QD
     Route: 042
     Dates: start: 20250624, end: 20250624
  3. TZIELD [Suspect]
     Active Substance: TEPLIZUMAB-MZWV
     Dosage: 250 UG/M2, QD
     Route: 042
     Dates: start: 20250625, end: 20250625
  4. TZIELD [Suspect]
     Active Substance: TEPLIZUMAB-MZWV
     Dosage: 500 UG/M2, QD
     Route: 042
     Dates: start: 20250626, end: 20250626
  5. TZIELD [Suspect]
     Active Substance: TEPLIZUMAB-MZWV
     Dosage: 1020 UG/M2, QD
     Route: 042
     Dates: start: 20250627, end: 20250706

REACTIONS (3)
  - Abdominal discomfort [Recovering/Resolving]
  - Decreased appetite [Recovering/Resolving]
  - Fatigue [Recovering/Resolving]

NARRATIVE: CASE EVENT DATE: 20250819
